FAERS Safety Report 16975517 (Version 1)
Quarter: 2019Q4

REPORT INFORMATION
  Report Type: Spontaneous
  Country: NL (occurrence: NL)
  Receive Date: 20191030
  Receipt Date: 20191030
  Transmission Date: 20200122
  Serious: Yes (Other)
  Sender: FDA-Public Use
  Company Number: NL-ABBVIE-19K-114-2979027-00

PATIENT
  Age: 52 Year
  Sex: Female

DRUGS (2)
  1. HYRIMOZ [Concomitant]
     Active Substance: ADALIMUMAB-ADAZ
     Indication: INFLAMMATORY BOWEL DISEASE
     Route: 065
     Dates: start: 20190702
  2. HUMIRA [Suspect]
     Active Substance: ADALIMUMAB
     Indication: PRODUCT USED FOR UNKNOWN INDICATION
     Route: 058
     Dates: end: 20190702

REACTIONS (5)
  - Inflammatory bowel disease [Unknown]
  - Abdominal pain [Unknown]
  - Injection site pain [Unknown]
  - Drug ineffective [Unknown]
  - Needle issue [Unknown]
